FAERS Safety Report 4576933-2 (Version None)
Quarter: 2005Q1

REPORT INFORMATION
  Report Type: 
  Country: None (occurrence: None)
  Receive Date: 20050208
  Receipt Date: 20050125
  Transmission Date: 20050727
  Serious: Yes (Hospitalization, Other)
  Sender: FDA-Public Use
  Company Number: 2005021901

PATIENT
  Age: 20 Year
  Sex: Female
  Weight: 82.1011 kg

DRUGS (1)
  1. CELEBREX [Suspect]
     Indication: BACK PAIN
     Dosage: 200 MG (200 MG, AS NECESSARY), ORAL
     Route: 048
     Dates: start: 20010101

REACTIONS (2)
  - ABDOMINAL PAIN UPPER [None]
  - WEIGHT DECREASED [None]
